FAERS Safety Report 10786622 (Version 1)
Quarter: 2015Q1

REPORT INFORMATION
  Report Type: Spontaneous
  Country: US (occurrence: US)
  Receive Date: 20150211
  Receipt Date: 20150211
  Transmission Date: 20150721
  Serious: Yes (Life-Threatening, Hospitalization, Other)
  Sender: FDA-Public Use
  Company Number: US-APOTEX-2015AP006477

PATIENT
  Age: 17 Year
  Sex: Male

DRUGS (4)
  1. IMIPRAMINE [Suspect]
     Active Substance: IMIPRAMINE
     Indication: PRODUCT USED FOR UNKNOWN INDICATION
     Dosage: 1.9 MG/KG
     Route: 048
  2. VALPROIC ACID. [Suspect]
     Active Substance: VALPROIC ACID
     Indication: PRODUCT USED FOR UNKNOWN INDICATION
     Dosage: 146 MG/KG
     Route: 048
  3. GUANFACINE. [Suspect]
     Active Substance: GUANFACINE
     Indication: PRODUCT USED FOR UNKNOWN INDICATION
     Dosage: 0.39 MG/KG
     Route: 048
  4. OLANZAPINE. [Suspect]
     Active Substance: OLANZAPINE
     Indication: PRODUCT USED FOR UNKNOWN INDICATION
     Dosage: 2.9 MG/KG
     Route: 048

REACTIONS (4)
  - Overdose [Recovered/Resolved]
  - Brain oedema [Recovering/Resolving]
  - Hyperammonaemia [Recovered/Resolved]
  - Pneumonia [Recovering/Resolving]
